FAERS Safety Report 25116169 (Version 1)
Quarter: 2025Q1

REPORT INFORMATION
  Report Type: Spontaneous
  Country: US (occurrence: US)
  Receive Date: 20250325
  Receipt Date: 20250325
  Transmission Date: 20250409
  Serious: No
  Sender: SANOFI AVENTIS
  Company Number: US-SA-2025SA086101

PATIENT
  Age: 75 Year

DRUGS (1)
  1. ELITEK [Suspect]
     Active Substance: RASBURICASE
     Indication: Hodgkin^s disease
     Route: 042

REACTIONS (1)
  - Off label use [Unknown]
